FAERS Safety Report 13400749 (Version 1)
Quarter: 2017Q2

REPORT INFORMATION
  Report Type: Spontaneous
  Country: FR (occurrence: FR)
  Receive Date: 20170404
  Receipt Date: 20170404
  Transmission Date: 20170830
  Serious: Yes (Hospitalization)
  Sender: FDA-Public Use
  Company Number: FR-ASTRAZENECA-2017SE33200

PATIENT
  Age: 8185 Day
  Sex: Female

DRUGS (2)
  1. TOLEXINE [Suspect]
     Active Substance: DOXYCYCLINE
     Indication: ACNE
     Route: 065
     Dates: start: 20170307, end: 20170310
  2. INEXIUM [Suspect]
     Active Substance: ESOMEPRAZOLE
     Indication: ABDOMINAL PAIN UPPER
     Route: 048
     Dates: start: 20170307, end: 20170310

REACTIONS (1)
  - Pancreatitis relapsing [Recovering/Resolving]

NARRATIVE: CASE EVENT DATE: 20170308
